FAERS Safety Report 6737962-3 (Version None)
Quarter: 2010Q2

REPORT INFORMATION
  Report Type: 
  Country: None (occurrence: None)
  Receive Date: 20100524
  Receipt Date: 20100513
  Transmission Date: 20101027
  Serious: Yes (Other)
  Sender: FDA-Public Use
  Company Number: US-ROCHE-698286

PATIENT
  Sex: Female
  Weight: 52.6 kg

DRUGS (2)
  1. CAPECITABINE [Suspect]
     Dosage: ROUTE: BY MOUTH, 2 TABLETS IN MORNING AND 3 IN EVENING
     Route: 048
     Dates: start: 20090424, end: 20100412
  2. CAPECITABINE [Suspect]
     Dosage: 2 TAB IN MORNING AND 3 IN EVENING
     Route: 048
     Dates: start: 20100424

REACTIONS (3)
  - ASCITES [None]
  - PLATELET COUNT DECREASED [None]
  - TUMOUR MARKER INCREASED [None]
